FAERS Safety Report 8380461-6 (Version None)
Quarter: 2012Q2

REPORT INFORMATION
  Report Type: 
  Country: None (occurrence: None)
  Receive Date: 20120523
  Receipt Date: 20120516
  Transmission Date: 20120825
  Serious: Yes (Hospitalization)
  Sender: FDA-Public Use
  Company Number: US-GLAXOSMITHKLINE-A0978473A

PATIENT
  Age: 63 Year
  Sex: Female
  Weight: 84.5 kg

DRUGS (10)
  1. MULTI-VITAMIN [Concomitant]
  2. TYKERB [Suspect]
     Indication: PRODUCT USED FOR UNKNOWN INDICATION
     Dosage: 1250MG PER DAY
     Route: 048
  3. COLACE [Concomitant]
  4. NAPROXEN (ALEVE) [Concomitant]
  5. XALATAN [Concomitant]
  6. ENALAPRIL MALEATE [Concomitant]
  7. TOPROL-XL [Concomitant]
  8. RENVELA [Concomitant]
  9. SENOKOT [Concomitant]
  10. NORVASC [Concomitant]

REACTIONS (3)
  - INCREASED TENDENCY TO BRUISE [None]
  - VIRAL INFECTION [None]
  - FATIGUE [None]
